FAERS Safety Report 9552955 (Version 2)
Quarter: 2013Q4

REPORT INFORMATION
  Report Type: Spontaneous
  Country: US (occurrence: US)
  Receive Date: 20130925
  Receipt Date: 20131010
  Transmission Date: 20140711
  Serious: Yes (Other)
  Sender: FDA-Public Use
  Company Number: US-JNJFOC-20130909942

PATIENT
  Age: 79 Year
  Sex: Male
  Weight: 76.66 kg

DRUGS (4)
  1. INVOKANA [Suspect]
     Indication: PRODUCT USED FOR UNKNOWN INDICATION
     Route: 048
     Dates: start: 20130715, end: 20130924
  2. DIOVAN [Concomitant]
     Indication: HYPERTENSION
  3. WELCHOL [Concomitant]
     Indication: LIPIDS ABNORMAL
  4. ALLEGRA [Concomitant]
     Indication: HOUSE DUST ALLERGY

REACTIONS (5)
  - Prostatic specific antigen increased [Recovering/Resolving]
  - Renal impairment [Recovering/Resolving]
  - Thirst [Recovering/Resolving]
  - Urine output increased [Recovering/Resolving]
  - Weight decreased [Recovering/Resolving]
